FAERS Safety Report 8545348-4 (Version None)
Quarter: 2012Q3

REPORT INFORMATION
  Report Type: 
  Country: None (occurrence: None)
  Receive Date: 20120727
  Receipt Date: 20120725
  Transmission Date: 20120928
  Serious: No
  Sender: FDA-Public Use
  Company Number: US-TEVA-350571USA

PATIENT
  Sex: Female
  Weight: 86.26 kg

DRUGS (1)
  1. PLAN B ONE-STEP [Suspect]
     Indication: POST COITAL CONTRACEPTION
     Dosage: 1.5 MILLIGRAM;
     Route: 048
     Dates: start: 20120719, end: 20120719

REACTIONS (4)
  - MENSTRUATION IRREGULAR [None]
  - MOOD SWINGS [None]
  - VAGINAL DISCHARGE [None]
  - PELVIC PAIN [None]
